FAERS Safety Report 5086474-4 (Version None)
Quarter: 2006Q3

REPORT INFORMATION
  Report Type: 
  Country: None (occurrence: None)
  Receive Date: 20060821
  Receipt Date: 20060821
  Transmission Date: 20061208
  Serious: No
  Sender: FDA-Public Use
  Company Number: None

PATIENT
  Age: 42 Year
  Sex: Male
  Weight: 59 kg

DRUGS (13)
  1. OMNISCAN [Suspect]
     Indication: COMPLICATIONS OF TRANSPLANTED LIVER
     Dosage: 40 CC ONE TIME INJECTION IV
     Route: 042
     Dates: start: 20000707, end: 20000707
  2. OMNISCAN [Suspect]
     Indication: COMPLICATIONS OF TRANSPLANTED LIVER
     Dosage: 40 CC ONE TIME INJECTION IV
     Route: 042
     Dates: start: 20000818, end: 20000818
  3. PREDNISONE TAB [Concomitant]
  4. CELLCEPT [Concomitant]
  5. PEPCID [Concomitant]
  6. NORVASC [Concomitant]
  7. CLONIDINE [Concomitant]
  8. FLORINEF [Concomitant]
  9. ACTIGAL [Concomitant]
  10. LASIX [Concomitant]
  11. BICARBONATE [Concomitant]
  12. PROGRAF [Concomitant]
  13. EPOGEN [Concomitant]

REACTIONS (8)
  - ABASIA [None]
  - DISEASE RECURRENCE [None]
  - HEPATITIS C [None]
  - MULTI-ORGAN FAILURE [None]
  - MUSCLE CONTRACTURE [None]
  - NEPHROGENIC FIBROSING DERMOPATHY [None]
  - SKIN ULCER [None]
  - THERAPEUTIC RESPONSE DECREASED [None]
